FAERS Safety Report 20030973 (Version 1)
Quarter: 2021Q4

REPORT INFORMATION
  Report Type: Report from Study
  Country: US (occurrence: None)
  Receive Date: 20211103
  Receipt Date: 20211103
  Transmission Date: 20220303
  Serious: Yes (Hospitalization, Other)
  Sender: FDA-Public Use
  Company Number: 2021A788574

PATIENT
  Sex: Female

DRUGS (1)
  1. LYNPARZA [Suspect]
     Active Substance: OLAPARIB
     Indication: Ovarian cancer
     Route: 048
     Dates: start: 20210616

REACTIONS (7)
  - Malaise [Unknown]
  - Syncope [Unknown]
  - Anaemia [Unknown]
  - Full blood count abnormal [Unknown]
  - Visual impairment [Unknown]
  - Gait inability [Unknown]
  - Asthenia [Unknown]
